FAERS Safety Report 4976532-4 (Version None)
Quarter: 2006Q2

REPORT INFORMATION
  Report Type: 
  Country: None (occurrence: None)
  Receive Date: 20060418
  Receipt Date: 20060418
  Transmission Date: 20061013
  Serious: Yes (Hospitalization, Other)
  Sender: FDA-Public Use
  Company Number: None

PATIENT
  Sex: Female
  Weight: 87 kg

DRUGS (10)
  1. GEMCITABINE [Suspect]
     Indication: BREAST CANCER
     Dosage: 480 MG
     Dates: start: 20060315, end: 20060322
  2. PACLITAXEL [Suspect]
     Dosage: 3800 MG
     Dates: start: 20060315, end: 20060322
  3. NOVOLIN N PENFILL (NPH) [Concomitant]
  4. ASPIRIN [Concomitant]
  5. COZAAR [Concomitant]
  6. HYDROCHLOROTHIAZIDE [Concomitant]
  7. LEVOTHYROXINE SODIUM [Concomitant]
  8. METOPROLOL [Concomitant]
  9. PIOGLITAZONE ACOTOS [Concomitant]
  10. ZOCOR [Concomitant]

REACTIONS (3)
  - DEHYDRATION [None]
  - HYPOTENSION [None]
  - RENAL FAILURE ACUTE [None]
